FAERS Safety Report 24085462 (Version 1)
Quarter: 2024Q3

REPORT INFORMATION
  Report Type: Spontaneous
  Country: US (occurrence: US)
  Receive Date: 20240712
  Receipt Date: 20240712
  Transmission Date: 20241017
  Serious: Yes (Death, Hospitalization, Other)
  Sender: AMGEN
  Company Number: US-AMGEN-USASP2024133704

PATIENT

DRUGS (7)
  1. PREDNISONE [Suspect]
     Active Substance: PREDNISONE
     Indication: B-cell lymphoma
     Dosage: 2 CYCLES
     Route: 065
  2. PREDNISONE [Suspect]
     Active Substance: PREDNISONE
     Dosage: 4 CYCLES
     Route: 065
  3. RITUXIMAB [Concomitant]
     Active Substance: RITUXIMAB
  4. CYCLOPHOSPHAMIDE [Concomitant]
     Active Substance: CYCLOPHOSPHAMIDE
  5. DOXORUBICIN [Concomitant]
     Active Substance: DOXORUBICIN
  6. VINCRISTINE [Concomitant]
     Active Substance: VINCRISTINE
  7. ETOPOSIDE [Concomitant]
     Active Substance: ETOPOSIDE

REACTIONS (14)
  - Death [Fatal]
  - Unevaluable event [Unknown]
  - Mucosal inflammation [Unknown]
  - Febrile neutropenia [Unknown]
  - Fungal infection [Unknown]
  - Cardiac failure [Unknown]
  - Renal impairment [Unknown]
  - Thrombosis [Unknown]
  - Bacterial sepsis [Unknown]
  - Fungal infection [Unknown]
  - B-cell lymphoma [Unknown]
  - Therapy partial responder [Unknown]
  - Anxiety [Unknown]
  - Depression [Unknown]
